FAERS Safety Report 4634167-7 (Version None)
Quarter: 2005Q2

REPORT INFORMATION
  Report Type: 
  Country: None (occurrence: None)
  Receive Date: 20050406
  Receipt Date: 20050214
  Transmission Date: 20051028
  Serious: Yes (Hospitalization, Disabling)
  Sender: FDA-Public Use
  Company Number: 600252

PATIENT
  Age: 57 Year
  Sex: Male

DRUGS (6)
  1. GAMMAGARD SD (IMMUNOGLOBULIN INTRAVENOUS (HUMAN) SD) [Suspect]
     Indication: MYASTHENIA GRAVIS
     Dosage: 60 GM; QM; INTRAVENOUS
     Route: 042
     Dates: start: 20011212, end: 20011212
  2. MESTINON [Concomitant]
  3. IMUREL [Concomitant]
  4. AMOXICILLIN [Concomitant]
  5. CLARITHROMYCIN [Concomitant]
  6. ESOMEPRAZOLE [Concomitant]

REACTIONS (9)
  - CEREBRAL INFARCTION [None]
  - CONDITION AGGRAVATED [None]
  - DIARRHOEA [None]
  - FATIGUE [None]
  - GASTRIC ULCER [None]
  - GENERAL PHYSICAL HEALTH DETERIORATION [None]
  - HYPERVISCOSITY SYNDROME [None]
  - MYASTHENIC SYNDROME [None]
  - VISUAL DISTURBANCE [None]
